FAERS Safety Report 14196462 (Version 1)
Quarter: 2017Q4

REPORT INFORMATION
  Report Type: Spontaneous
  Country: FR (occurrence: FR)
  Receive Date: 20171116
  Receipt Date: 20171116
  Transmission Date: 20180321
  Serious: Yes (Hospitalization)
  Sender: FDA-Public Use
  Company Number: FR-PFIZER INC-2017487088

PATIENT
  Age: 36 Year
  Sex: Male

DRUGS (2)
  1. XANAX [Suspect]
     Active Substance: ALPRAZOLAM
     Dosage: AT HIGHER DOSAGE THAN THE ONE PRESCRIBED
     Route: 048
     Dates: start: 2017
  2. ZOLPIDEM MERCK [Suspect]
     Active Substance: ZOLPIDEM TARTRATE
     Dosage: 4 DF, DAILY
     Route: 048
     Dates: start: 2017

REACTIONS (4)
  - Drug dependence [Recovering/Resolving]
  - Loss of consciousness [Recovered/Resolved]
  - Intentional product misuse [Recovering/Resolving]
  - Epilepsy [Recovered/Resolved]

NARRATIVE: CASE EVENT DATE: 20171026
